FAERS Safety Report 22038448 (Version 1)
Quarter: 2023Q1

REPORT INFORMATION
  Report Type: Spontaneous
  Country: ZA (occurrence: ZA)
  Receive Date: 20230227
  Receipt Date: 20230227
  Transmission Date: 20230418
  Serious: Yes (Hospitalization, Other)
  Sender: FDA-Public Use
  Company Number: ZA-LUPIN PHARMACEUTICALS INC.-2023-01378

PATIENT

DRUGS (2)
  1. LOSARTAN POTASSIUM [Suspect]
     Active Substance: LOSARTAN POTASSIUM
     Indication: Hypertension
     Dosage: 100 MG
     Route: 048
     Dates: end: 202301
  2. HYDROCHLOROTHIAZIDE [Suspect]
     Active Substance: HYDROCHLOROTHIAZIDE
     Indication: Hypertension
     Dosage: 25 MG
     Route: 048
     Dates: end: 202301

REACTIONS (7)
  - Cardiac failure [Unknown]
  - Immobile [Unknown]
  - Dysuria [Unknown]
  - Generalised oedema [Unknown]
  - Fluid retention [Unknown]
  - Fatigue [Unknown]
  - Dyspnoea [Unknown]
